FAERS Safety Report 12742481 (Version 1)
Quarter: 2016Q3

REPORT INFORMATION
  Report Type: Spontaneous
  Country: FR (occurrence: FR)
  Receive Date: 20160914
  Receipt Date: 20160914
  Transmission Date: 20161109
  Serious: Yes (Hospitalization)
  Sender: FDA-Public Use
  Company Number: FR-PFIZER INC-2016423697

PATIENT
  Age: 7 Year
  Sex: Female
  Weight: 28 kg

DRUGS (3)
  1. GENTAMICIN. [Concomitant]
     Active Substance: GENTAMICIN
     Indication: ANTIBIOTIC THERAPY
     Dosage: 140 MG, 1X/DAY
     Route: 042
     Dates: start: 20160712, end: 20160719
  2. BACTRIM [Suspect]
     Active Substance: SULFAMETHOXAZOLE\TRIMETHOPRIM
     Indication: ANTIBIOTIC THERAPY
     Dosage: 400 MG/ 80 MG (1 DF), 2X/DAY
     Route: 048
     Dates: start: 20160719, end: 20160726
  3. TAZOCILLINE [Suspect]
     Active Substance: PIPERACILLIN SODIUM\TAZOBACTAM SODIUM
     Indication: ANTIBIOTIC THERAPY
     Dosage: 2.1 G, 3X/DAY
     Route: 042
     Dates: start: 20160712, end: 20160726

REACTIONS (2)
  - Histiocytosis haematophagic [Recovered/Resolved]
  - Drug reaction with eosinophilia and systemic symptoms [Recovered/Resolved]

NARRATIVE: CASE EVENT DATE: 20160726
